FAERS Safety Report 6443736-3 (Version None)
Quarter: 2009Q4

REPORT INFORMATION
  Report Type: 
  Country: None (occurrence: None)
  Receive Date: 20091117
  Receipt Date: 20091106
  Transmission Date: 20100525
  Serious: Yes (Death, Hospitalization)
  Sender: FDA-Public Use
  Company Number: SE-AMGEN-US374554

PATIENT
  Sex: Female

DRUGS (9)
  1. ENBREL [Suspect]
     Indication: RHEUMATOID ARTHRITIS
     Route: 058
     Dates: end: 20090825
  2. CYCLOPHOSPHAMIDE [Suspect]
     Dosage: 861 MG EVERY 1 TOT
     Route: 042
     Dates: start: 20090901, end: 20090901
  3. FLUOROURACIL [Suspect]
     Dosage: 861 MG EVERY 1 TOT
     Route: 042
     Dates: start: 20090901, end: 20090901
  4. EPIRUBICIN [Suspect]
     Dosage: 108 MG EVERY 1 TOT
     Route: 042
     Dates: start: 20090901, end: 20090901
  5. HALDOL [Concomitant]
     Dosage: TABLET 1 MG
  6. ARTROX [Concomitant]
     Dosage: FILM-COATED TABLET 625 MG
  7. POSTAFEN [Concomitant]
     Dosage: TABLET 25 MG
  8. ACETAMINOPHEN [Concomitant]
     Dosage: FILM-COATED TABLET 500 MG
  9. ACTRAPID PENFILL [Concomitant]
     Dosage: SOLUTION FOR INJECTION, PREFILLED PEN 100 IE/ML

REACTIONS (5)
  - BREAST CANCER RECURRENT [None]
  - MULTI-ORGAN FAILURE [None]
  - PANCYTOPENIA [None]
  - SEPSIS [None]
  - SEPTIC SHOCK [None]
